FAERS Safety Report 25615959 (Version 1)
Quarter: 2025Q3

REPORT INFORMATION
  Report Type: Spontaneous
  Country: EU (occurrence: EU)
  Receive Date: 20250729
  Receipt Date: 20250729
  Transmission Date: 20251020
  Serious: Yes (Death, Hospitalization, Other)
  Sender: Unknown Manufacturer
  Company Number: None

PATIENT
  Age: 80 Year
  Sex: Male

DRUGS (12)
  1. LEVETIRACETAM [Suspect]
     Active Substance: LEVETIRACETAM
     Indication: Epilepsy
     Dosage: 1-0-2
     Dates: start: 202502
  2. LEVETIRACETAM [Suspect]
     Active Substance: LEVETIRACETAM
     Indication: Epilepsy
     Dosage: 1-0-1
     Route: 048
     Dates: start: 20250610, end: 20250614
  3. ASS-ratiopharm 100 mg TAH [Concomitant]
     Indication: Product used for unknown indication
     Dosage: 1-0-0
     Route: 048
     Dates: start: 20250607, end: 20250620
  4. Piperacillin plus Tazobactam Eberth 4 g / 0,5 g [Concomitant]
     Indication: Product used for unknown indication
     Dosage: 1-1-1
     Route: 042
     Dates: start: 20250611, end: 20250620
  5. Ampicillin plus Sulbactam Eberth 2g/1g [Concomitant]
     Indication: Product used for unknown indication
     Dosage: 1-1-1
     Route: 042
     Dates: start: 20250607, end: 20250610
  6. Pantoprazol Aristo 20 mg magensaftresistente Tabletten [Concomitant]
     Indication: Product used for unknown indication
     Dosage: 1-0-0
     Route: 048
     Dates: start: 20250607, end: 20250620
  7. bicaNorm 1 g [Concomitant]
     Indication: Product used for unknown indication
     Dosage: 1-1-1
     Route: 048
     Dates: start: 20250607, end: 20250612
  8. PANCRELIPASE [Concomitant]
     Active Substance: PANCRELIPASE
     Indication: Product used for unknown indication
     Dosage: 1-1-0
     Route: 048
     Dates: start: 20250607, end: 20250620
  9. Clopidogrel TAD 75 mg [Concomitant]
     Indication: Product used for unknown indication
     Dosage: 1-0-0
     Route: 048
     Dates: start: 20250607, end: 20250609
  10. Torasemid AL 10 mg Tabletten [Concomitant]
     Indication: Product used for unknown indication
     Dosage: 1-0-0
     Route: 048
     Dates: start: 20250607, end: 20250611
  11. BISOPROLOL FUMARATE [Concomitant]
     Active Substance: BISOPROLOL FUMARATE
     Indication: Product used for unknown indication
     Dosage: 1-0-0.5
     Route: 048
     Dates: start: 20250607, end: 20250620
  12. Simvahexal 20 mg Filmtabletten [Concomitant]
     Indication: Product used for unknown indication
     Dosage: 0-0-1
     Route: 048
     Dates: start: 20250607, end: 20250609

REACTIONS (4)
  - Septic shock [Fatal]
  - Toxic epidermal necrolysis [Fatal]
  - Stevens-Johnson syndrome [Fatal]
  - Skin reaction [Unknown]

NARRATIVE: CASE EVENT DATE: 20250201
